FAERS Safety Report 4702672-0 (Version None)
Quarter: 2005Q2

REPORT INFORMATION
  Report Type: 
  Country: None (occurrence: None)
  Receive Date: 20050629
  Receipt Date: 20041122
  Transmission Date: 20051028
  Serious: No
  Sender: FDA-Public Use
  Company Number: US-GLAXOSMITHKLINE-A0535043A

PATIENT
  Age: 32 Year
  Sex: Female

DRUGS (1)
  1. ZYBAN [Suspect]
     Route: 048
     Dates: start: 19990101

REACTIONS (4)
  - CHILLS [None]
  - INSOMNIA [None]
  - NIGHT SWEATS [None]
  - NIGHTMARE [None]
